FAERS Safety Report 9056234 (Version 1)
Quarter: 2013Q1

REPORT INFORMATION
  Report Type: Spontaneous
  Country: US (occurrence: US)
  Receive Date: 20130205
  Receipt Date: 20130205
  Transmission Date: 20140127
  Serious: No
  Sender: FDA-Public Use
  Company Number: US-009507513-1301USA012149

PATIENT
  Age: 60 None
  Sex: Female

DRUGS (2)
  1. MIRALAX [Suspect]
     Indication: BOWEL PREPARATION
     Dosage: UNK, UNKNOWN
     Route: 048
     Dates: start: 20121016, end: 20121017
  2. MIRALAX [Suspect]
     Indication: MEDICAL OBSERVATION

REACTIONS (2)
  - Off label use [Unknown]
  - Prescribed overdose [Unknown]
